FAERS Safety Report 7050486-1 (Version None)
Quarter: 2010Q4

REPORT INFORMATION
  Report Type: 
  Country: None (occurrence: None)
  Receive Date: 20101018
  Receipt Date: 20101005
  Transmission Date: 20110411
  Serious: Yes (Other)
  Sender: FDA-Public Use
  Company Number: US-ELI_LILLY_AND_COMPANY-US201010001255

PATIENT
  Age: 45 Year
  Sex: Male

DRUGS (5)
  1. STRATTERA [Suspect]
     Indication: ATTENTION DEFICIT/HYPERACTIVITY DISORDER
     Dosage: 1 D/F, UNKNOWN
     Route: 065
  2. CELEXA [Concomitant]
     Indication: DEPRESSION
     Dosage: 20 MG, UNKNOWN
     Route: 065
  3. NEXIUM [Concomitant]
  4. FLONASE [Concomitant]
  5. LISINOPRIL [Concomitant]

REACTIONS (1)
  - SUICIDE ATTEMPT [None]
